FAERS Safety Report 20932909 (Version 1)
Quarter: 2022Q2

REPORT INFORMATION
  Report Type: Spontaneous
  Country: US (occurrence: US)
  Receive Date: 20220608
  Receipt Date: 20220608
  Transmission Date: 20220720
  Serious: No
  Sender: FDA-Public Use
  Company Number: US-REGENERON PHARMACEUTICALS, INC.-2022-059393

PATIENT
  Sex: Female

DRUGS (1)
  1. EYLEA [Suspect]
     Active Substance: AFLIBERCEPT
     Indication: Age-related macular degeneration
     Dosage: BILATERAL INJECTIONS EVERY 8-10 WEEKS INTRAVITREALLY FOR APPROXIMATELY 7 YEARS, INJECTION
     Dates: start: 2015

REACTIONS (2)
  - Gait disturbance [Unknown]
  - Arthropathy [Unknown]
